FAERS Safety Report 4942547-5 (Version None)
Quarter: 2006Q1

REPORT INFORMATION
  Report Type: 
  Country: None (occurrence: None)
  Receive Date: 20060313
  Receipt Date: 20050413
  Transmission Date: 20060701
  Serious: No
  Sender: FDA-Public Use
  Company Number: US-GLAXOSMITHKLINE-A0553944A

PATIENT
  Age: 29 Year
  Sex: Male

DRUGS (1)
  1. EQUATE NICOTINE GUM 2MG [Suspect]

REACTIONS (2)
  - DRUG INEFFECTIVE [None]
  - STOMATITIS [None]
